FAERS Safety Report 6871572-2 (Version None)
Quarter: 2010Q3

REPORT INFORMATION
  Report Type: 
  Country: None (occurrence: None)
  Receive Date: 20100723
  Receipt Date: 20100716
  Transmission Date: 20110219
  Serious: Yes (Hospitalization)
  Sender: FDA-Public Use
  Company Number: PHHO2010NL06630

PATIENT
  Sex: Male

DRUGS (5)
  1. RAD [Suspect]
     Indication: CARCINOID TUMOUR
     Dosage: 5 MG EVERY OTHER DAY
     Route: 048
  2. AFINITOR [Suspect]
     Indication: CARCINOID TUMOUR
     Dosage: BLINDED
     Dates: start: 20080516
  3. BLINDED NO TREATMENT RECEIVED NOMED [Suspect]
     Indication: CARCINOID TUMOUR
     Dosage: BLINDED
     Dates: start: 20080516
  4. BLINDED PLACEBO COMP-PLA+ [Suspect]
     Indication: CARCINOID TUMOUR
     Dosage: BLINDED
     Dates: start: 20080516
  5. SANDOSTATIN LAR [Concomitant]
     Indication: CARCINOID TUMOUR
     Dosage: UNK

REACTIONS (2)
  - MUSCULOSKELETAL PAIN [None]
  - PAIN IN EXTREMITY [None]
